FAERS Safety Report 7459741-4 (Version None)
Quarter: 2011Q2

REPORT INFORMATION
  Report Type: 
  Country: None (occurrence: None)
  Receive Date: 20110505
  Receipt Date: 20110427
  Transmission Date: 20111010
  Serious: Yes (Hospitalization)
  Sender: FDA-Public Use
  Company Number: BR-US-EMD SERONO, INC.-7056186

PATIENT
  Sex: Female

DRUGS (5)
  1. REBIF [Suspect]
     Indication: RELAPSING-REMITTING MULTIPLE SCLEROSIS
     Dates: start: 20041101
  2. ENALAPRIL [Concomitant]
  3. ATENOLOL [Concomitant]
  4. CARBAMAZEPINE [Concomitant]
  5. PAMELOR [Concomitant]

REACTIONS (1)
  - HAEMORRHOIDS [None]
